FAERS Safety Report 7907650-6 (Version None)
Quarter: 2011Q4

REPORT INFORMATION
  Report Type: 
  Country: None (occurrence: None)
  Receive Date: 20111110
  Receipt Date: 20110915
  Transmission Date: 20120403
  Serious: Yes (Life-Threatening, Hospitalization)
  Sender: FDA-Public Use
  Company Number: JP-BAYER-2011-082328

PATIENT
  Age: 76 Year
  Sex: Male

DRUGS (6)
  1. CLOPIDOGREL BISULFATE [Interacting]
     Indication: ANTIPLATELET THERAPY
     Dosage: DAILY DOSE 75 MG
     Route: 048
     Dates: start: 20090301, end: 20110328
  2. SARPOGRELATE HYDROCHLORIDE [Suspect]
     Indication: ANTIPLATELET THERAPY
     Dosage: DAILY DOSE 300 MG
     Route: 048
     Dates: start: 20090301, end: 20110328
  3. CEFTRIAXONE [Concomitant]
     Indication: PNEUMONIA
     Dosage: DAILY DOSE 2 G
     Route: 041
     Dates: start: 20110101
  4. ASPIRIN [Interacting]
     Indication: ANGINA PECTORIS
     Dosage: DAILY DOSE 100 MG
     Route: 048
     Dates: start: 20090301, end: 20110328
  5. ASPIRIN [Interacting]
     Dosage: DAILY DOSE 100 MG
     Route: 048
     Dates: start: 20110101
  6. PAZUFLOXACIN [Concomitant]
     Indication: PNEUMONIA
     Dosage: DAILY DOSE 1000 MG
     Route: 041
     Dates: start: 20110101

REACTIONS (1)
  - PULMONARY ALVEOLAR HAEMORRHAGE [None]
